FAERS Safety Report 12810586 (Version 1)
Quarter: 2016Q4

REPORT INFORMATION
  Report Type: Report from Study
  Country: US (occurrence: US)
  Receive Date: 20161005
  Receipt Date: 20161005
  Transmission Date: 20170207
  Serious: Yes (Other)
  Sender: FDA-Public Use
  Company Number: US-ROCHE-1836592

PATIENT
  Age: 59 Year
  Sex: Female
  Weight: 69.7 kg

DRUGS (27)
  1. BEVACIZUMAB [Suspect]
     Active Substance: BEVACIZUMAB
     Dosage: COURSE ID 14
     Route: 042
     Dates: start: 20140729
  2. BEVACIZUMAB [Suspect]
     Active Substance: BEVACIZUMAB
     Dosage: COURSE ID 5
     Route: 042
     Dates: start: 20140107
  3. BEVACIZUMAB [Suspect]
     Active Substance: BEVACIZUMAB
     Dosage: COURSE ID 11
     Route: 042
     Dates: start: 20140528
  4. BEVACIZUMAB [Suspect]
     Active Substance: BEVACIZUMAB
     Dosage: COURSE ID 18
     Route: 042
     Dates: start: 20141021
  5. BEVACIZUMAB [Suspect]
     Active Substance: BEVACIZUMAB
     Indication: OVARIAN EPITHELIAL CANCER
     Dosage: OVER 30-90 MINUTES (BEGINNING IN COURSE 2) ON DAY 1?LAST TREATMENT DATE: 13/JAN/2015
     Route: 042
     Dates: start: 20131022
  6. BEVACIZUMAB [Suspect]
     Active Substance: BEVACIZUMAB
     Dosage: COURSE ID 8
     Route: 042
     Dates: start: 20140325
  7. BEVACIZUMAB [Suspect]
     Active Substance: BEVACIZUMAB
     Dosage: COURSE ID 10
     Route: 042
     Dates: start: 20140506
  8. BEVACIZUMAB [Suspect]
     Active Substance: BEVACIZUMAB
     Dosage: COURSE ID 12
     Route: 042
     Dates: start: 20140617
  9. VELIPARIB [Suspect]
     Active Substance: VELIPARIB
     Dosage: COURSE ID 4
     Route: 048
     Dates: start: 20131210
  10. VELIPARIB [Suspect]
     Active Substance: VELIPARIB
     Dosage: COURSE ID 5
     Route: 048
     Dates: start: 20140107
  11. BEVACIZUMAB [Suspect]
     Active Substance: BEVACIZUMAB
     Dosage: COURSE ID 21
     Route: 042
     Dates: start: 20141223
  12. VELIPARIB [Suspect]
     Active Substance: VELIPARIB
     Dosage: COURSE ID 3
     Route: 048
     Dates: start: 20131112
  13. VELIPARIB [Suspect]
     Active Substance: VELIPARIB
     Dosage: COURSE ID 6
     Route: 048
     Dates: start: 20140204
  14. BEVACIZUMAB [Suspect]
     Active Substance: BEVACIZUMAB
     Dosage: COURSE ID 3
     Route: 042
     Dates: start: 20131112
  15. BEVACIZUMAB [Suspect]
     Active Substance: BEVACIZUMAB
     Dosage: COURSE ID 15
     Route: 042
     Dates: start: 20140819
  16. BEVACIZUMAB [Suspect]
     Active Substance: BEVACIZUMAB
     Dosage: COURSE ID 19
     Route: 042
     Dates: start: 20141112
  17. BEVACIZUMAB [Suspect]
     Active Substance: BEVACIZUMAB
     Dosage: COURSE ID 7
     Route: 042
     Dates: start: 20140304
  18. BEVACIZUMAB [Suspect]
     Active Substance: BEVACIZUMAB
     Dosage: COURSE ID 17
     Route: 042
     Dates: start: 20140930
  19. BEVACIZUMAB [Suspect]
     Active Substance: BEVACIZUMAB
     Dosage: COURSE ID 4
     Route: 042
     Dates: start: 20131210
  20. BEVACIZUMAB [Suspect]
     Active Substance: BEVACIZUMAB
     Dosage: COURSE ID 9
     Route: 042
     Dates: start: 20140415
  21. BEVACIZUMAB [Suspect]
     Active Substance: BEVACIZUMAB
     Dosage: COURSE ID 22
     Route: 042
     Dates: start: 20150113
  22. VELIPARIB [Suspect]
     Active Substance: VELIPARIB
     Indication: OVARIAN EPITHELIAL CANCER
     Dosage: COURSE ID 1?ON DAYS 1-21 FOR 6 COURSES
     Route: 048
     Dates: start: 20131001
  23. VELIPARIB [Suspect]
     Active Substance: VELIPARIB
     Dosage: COURSE ID 2
     Route: 048
     Dates: start: 20131022
  24. BEVACIZUMAB [Suspect]
     Active Substance: BEVACIZUMAB
     Dosage: COURSE ID 6
     Route: 042
     Dates: start: 20140204
  25. BEVACIZUMAB [Suspect]
     Active Substance: BEVACIZUMAB
     Dosage: COURSE ID 13
     Route: 042
     Dates: start: 20140708
  26. BEVACIZUMAB [Suspect]
     Active Substance: BEVACIZUMAB
     Dosage: COURSE ID 16
     Route: 042
     Dates: start: 20140909
  27. BEVACIZUMAB [Suspect]
     Active Substance: BEVACIZUMAB
     Dosage: COURSE ID 20
     Route: 042
     Dates: start: 20141202

REACTIONS (4)
  - Blood bilirubin increased [Unknown]
  - Anaemia [Unknown]
  - Neutrophil count decreased [Unknown]
  - Platelet count decreased [Unknown]
